FAERS Safety Report 19106593 (Version 1)
Quarter: 2021Q2

REPORT INFORMATION
  Report Type: Spontaneous
  Country: JP (occurrence: JP)
  Receive Date: 20210407
  Receipt Date: 20210407
  Transmission Date: 20210717
  Serious: Yes (Hospitalization)
  Sender: FDA-Public Use
  Company Number: NVSJ2021JP004247

PATIENT
  Age: 79 Year
  Sex: Female

DRUGS (1)
  1. ENERZAIR [Suspect]
     Active Substance: GLYCOPYRROLATE\INDACATEROL\MOMETASONE FUROATE
     Indication: ASTHMA
     Dosage: 1DF: INDACATEROL 150UG, GLYCOPYRRONIUM 50UG, MOMETASONE FUROATE 160UG, UNK
     Route: 055

REACTIONS (2)
  - Lung neoplasm malignant [Unknown]
  - Concomitant disease aggravated [Unknown]

NARRATIVE: CASE EVENT DATE: 20210309
